FAERS Safety Report 9323935 (Version 1)
Quarter: 2013Q2

REPORT INFORMATION
  Report Type: Spontaneous
  Country: DE (occurrence: DE)
  Receive Date: 20130603
  Receipt Date: 20130603
  Transmission Date: 20140414
  Serious: Yes (Other)
  Sender: FDA-Public Use
  Company Number: DE-PFIZER INC-2013164236

PATIENT
  Age: 31 Year
  Sex: Female

DRUGS (1)
  1. CELEBREX [Suspect]
     Indication: ANKYLOSING SPONDYLITIS
     Dosage: 400 MG, UNK
     Dates: start: 201302

REACTIONS (1)
  - Urinary tract infection [Unknown]
